FAERS Safety Report 4726770-0 (Version None)
Quarter: 2005Q3

REPORT INFORMATION
  Report Type: 
  Country: None (occurrence: None)
  Receive Date: 20050725
  Receipt Date: 20050421
  Transmission Date: 20060218
  Serious: No
  Sender: FDA-Public Use
  Company Number: USA050496255

PATIENT
  Age: 61 Year
  Sex: Male

DRUGS (3)
  1. STRATTERA [Suspect]
     Indication: DEPRESSION
     Dosage: 80 MG DAY
     Dates: start: 20050101
  2. LEXAPRO [Concomitant]
  3. REMERON (MIRTAZAPINE ORIFARM) [Concomitant]

REACTIONS (3)
  - DRY MOUTH [None]
  - TINNITUS [None]
  - URINARY RETENTION [None]
